FAERS Safety Report 5705590-4 (Version None)
Quarter: 2008Q2

REPORT INFORMATION
  Report Type: 
  Country: None (occurrence: None)
  Receive Date: 20080411
  Receipt Date: 20080401
  Transmission Date: 20081010
  Serious: Yes (Life-Threatening, Hospitalization, Disabling)
  Sender: FDA-Public Use
  Company Number: MIN-00308

PATIENT
  Age: 84 Year
  Sex: Male
  Weight: 77.1115 kg

DRUGS (6)
  1. MINOCYCLINE HCL [Suspect]
     Indication: ARTERIOVENOUS MALFORMATION
     Dosage: 100 MG ORAL BID
     Route: 048
     Dates: start: 20040823, end: 20060325
  2. MINOCYCLINE HCL [Suspect]
     Indication: CEREBRAL DISORDER
     Dosage: 100 MG ORAL BID
     Route: 048
     Dates: start: 20040823, end: 20060325
  3. LIPITOR [Concomitant]
  4. COZAAR [Concomitant]
  5. LEVOTHYROXINE SODIUM [Concomitant]
  6. HYTRIN [Concomitant]

REACTIONS (1)
  - CEREBRAL HAEMORRHAGE [None]
